FAERS Safety Report 5187586-7 (Version None)
Quarter: 2006Q4

REPORT INFORMATION
  Report Type: 
  Country: None (occurrence: None)
  Receive Date: 20061220
  Receipt Date: 20051221
  Transmission Date: 20070319
  Serious: No
  Sender: FDA-Public Use
  Company Number: US-AMGEN-US162384

PATIENT
  Sex: Male

DRUGS (1)
  1. ENBREL [Suspect]
     Indication: JUVENILE ARTHRITIS
     Dates: start: 20041001

REACTIONS (2)
  - BURNING SENSATION [None]
  - ERYTHEMA [None]
